FAERS Safety Report 11046950 (Version 1)
Quarter: 2015Q2

REPORT INFORMATION
  Report Type: Spontaneous
  Country: US (occurrence: None)
  Receive Date: 20150417
  Receipt Date: 20150417
  Transmission Date: 20150821
  Serious: Yes (Other)
  Sender: FDA-Public Use
  Company Number: None

PATIENT
  Age: 89 Year
  Sex: Male

DRUGS (1)
  1. XTANDI [Suspect]
     Active Substance: ENZALUTAMIDE
     Route: 048
     Dates: start: 20150321, end: 20150415

REACTIONS (4)
  - Drug ineffective [None]
  - Dizziness [None]
  - Fall [None]
  - Decreased appetite [None]

NARRATIVE: CASE EVENT DATE: 20150415
